FAERS Safety Report 4905354-5 (Version None)
Quarter: 2006Q1

REPORT INFORMATION
  Report Type: 
  Country: None (occurrence: None)
  Receive Date: 20060207
  Receipt Date: 20060207
  Transmission Date: 20060701
  Serious: Yes (Hospitalization)
  Sender: FDA-Public Use
  Company Number: None

PATIENT
  Age: 60 Year
  Sex: Female
  Weight: 49.8957 kg

DRUGS (2)
  1. PENICILLIN [Suspect]
     Indication: INFECTION
     Dates: start: 20050128, end: 20060128
  2. CLINDAMYCIN HCL [Suspect]

REACTIONS (5)
  - CELLULITIS [None]
  - ERYTHEMA [None]
  - LOCAL SWELLING [None]
  - OEDEMA [None]
  - SWELLING FACE [None]
